FAERS Safety Report 18135433 (Version 1)
Quarter: 2020Q3

REPORT INFORMATION
  Report Type: Spontaneous
  Country: US (occurrence: US)
  Receive Date: 20200811
  Receipt Date: 20200811
  Transmission Date: 20201103
  Serious: Yes (Hospitalization)
  Sender: FDA-Public Use
  Company Number: None

PATIENT
  Sex: Female

DRUGS (2)
  1. LUPRON [Suspect]
     Active Substance: LEUPROLIDE ACETATE
     Indication: PERINEAL PAIN
     Dosage: ?          OTHER FREQUENCY:ONCE A MONTH;?
     Route: 030
  2. LUPRON [Suspect]
     Active Substance: LEUPROLIDE ACETATE
     Indication: PELVIC PAIN
     Dosage: ?          OTHER FREQUENCY:ONCE A MONTH;?
     Route: 030

REACTIONS (3)
  - Surgery [None]
  - Product supply issue [None]
  - Product dose omission issue [None]
